FAERS Safety Report 24557749 (Version 1)
Quarter: 2024Q4

REPORT INFORMATION
  Report Type: Spontaneous
  Country: US (occurrence: US)
  Receive Date: 20241028
  Receipt Date: 20241028
  Transmission Date: 20250114
  Serious: Yes (Hospitalization)
  Sender: LUNDBECK
  Company Number: US-LUNDBECK-DKLU4005944

PATIENT

DRUGS (1)
  1. SABRIL [Suspect]
     Active Substance: VIGABATRIN
     Indication: Infantile spasms
     Dosage: 800 MILLIGRAM
     Dates: start: 202409

REACTIONS (3)
  - Seizure [Unknown]
  - Gastrointestinal disorder [Unknown]
  - Vomiting [Unknown]
